FAERS Safety Report 5274912-3 (Version None)
Quarter: 2007Q1

REPORT INFORMATION
  Report Type: 
  Country: None (occurrence: None)
  Receive Date: 20061208
  Receipt Date: 20060428
  Transmission Date: 20070707
  Serious: No
  Sender: FDA-Public Use
  Company Number: 2006UW06454

PATIENT
  Age: 83 Year
  Sex: Male

DRUGS (7)
  1. CRESTOR [Suspect]
     Dosage: 10 MG PO
     Route: 048
     Dates: start: 20060101, end: 20060301
  2. CRESTOR [Suspect]
     Dosage: 20 MG PO
     Route: 047
     Dates: start: 20060301, end: 20060330
  3. VOLTAREN /00372303/ [Concomitant]
  4. BENICAR [Concomitant]
  5. PROTONIX [Concomitant]
  6. CARDURA [Concomitant]
  7. ASPIRIN [Concomitant]

REACTIONS (1)
  - RHABDOMYOLYSIS [None]
